FAERS Safety Report 7480686-8 (Version None)
Quarter: 2011Q2

REPORT INFORMATION
  Report Type: 
  Country: None (occurrence: None)
  Receive Date: 20110516
  Receipt Date: 20110107
  Transmission Date: 20111010
  Serious: Yes (Hospitalization)
  Sender: FDA-Public Use
  Company Number: US-BAYER-201028026NA

PATIENT
  Age: 20 Year
  Sex: Female
  Weight: 69.841 kg

DRUGS (13)
  1. YAZ [Suspect]
     Dosage: UNK
     Dates: start: 20070401, end: 20080101
  2. ABILIFY [Concomitant]
     Indication: BIPOLAR DISORDER
     Dosage: UNK
     Dates: start: 20050101
  3. ADDERALL 10 [Concomitant]
     Indication: ATTENTION DEFICIT/HYPERACTIVITY DISORDER
     Dosage: UNK
     Dates: start: 20030101
  4. ZOFRAN [Concomitant]
     Indication: GASTROENTERITIS
     Dosage: UNK
     Dates: start: 20081030
  5. VITAMIN C [Concomitant]
  6. ORTHO TRI-CYCLEN [Concomitant]
     Dosage: UNK
     Dates: start: 20070101, end: 20070410
  7. NSAID'S [Concomitant]
  8. PERCOCET [Concomitant]
     Indication: PAIN
     Dosage: UNK
     Dates: start: 20081001
  9. CENTRALLY ACTING SYMPATHOMIMETICS [Concomitant]
     Indication: ATTENTION DEFICIT/HYPERACTIVITY DISORDER
     Dosage: UNK
     Dates: start: 20030101
  10. YAZ [Suspect]
     Indication: CONTRACEPTION
     Dosage: UNK
     Route: 048
     Dates: start: 20080407, end: 20090821
  11. YASMIN [Suspect]
     Indication: CONTRACEPTION
     Dosage: UNK
     Route: 048
     Dates: start: 20080101, end: 20090901
  12. RISPERDAL [Concomitant]
     Indication: BIPOLAR DISORDER
     Dosage: UNK
     Dates: start: 20050101
  13. AMBIEN [Concomitant]
     Indication: SLEEP DISORDER THERAPY
     Dosage: UNK
     Dates: start: 20030101

REACTIONS (4)
  - CHOLECYSTITIS CHRONIC [None]
  - ABDOMINAL PAIN UPPER [None]
  - BILIARY COLIC [None]
  - CHOLELITHIASIS [None]
